FAERS Safety Report 13299848 (Version 4)
Quarter: 2017Q2

REPORT INFORMATION
  Report Type: Spontaneous
  Country: US (occurrence: US)
  Receive Date: 20170306
  Receipt Date: 20170420
  Transmission Date: 20170830
  Serious: Yes (Death, Hospitalization, Other)
  Sender: FDA-Public Use
  Company Number: US-ACTELION-A-US2017-150755

PATIENT
  Age: 72 Year
  Sex: Female
  Weight: 40.36 kg

DRUGS (2)
  1. VENTAVIS [Suspect]
     Active Substance: ILOPROST
     Indication: PULMONARY ARTERIAL HYPERTENSION
     Dosage: 5 MCG, 6-9 X/DAY
     Route: 055
  2. TRACLEER [Suspect]
     Active Substance: BOSENTAN
     Indication: PULMONARY ARTERIAL HYPERTENSION
     Dosage: 62.5 MG, BID
     Route: 048

REACTIONS (11)
  - Septic shock [Unknown]
  - Malnutrition [Unknown]
  - Bilevel positive airway pressure [Unknown]
  - Pneumonia [Unknown]
  - Pneumothorax [Unknown]
  - Acute respiratory failure [Unknown]
  - Gastrointestinal haemorrhage [Unknown]
  - Supraventricular tachycardia [Unknown]
  - Chronic respiratory failure [Unknown]
  - Cardiopulmonary failure [Fatal]
  - Anaemia [Unknown]
